FAERS Safety Report 6970127-9 (Version None)
Quarter: 2010Q3

REPORT INFORMATION
  Report Type: 
  Country: None (occurrence: None)
  Receive Date: 20100903
  Receipt Date: 20100820
  Transmission Date: 20110219
  Serious: Yes (Other)
  Sender: FDA-Public Use
  Company Number: 017962

PATIENT
  Sex: Female
  Weight: 60 kg

DRUGS (14)
  1. NEUPRO [Suspect]
     Indication: PARKINSON'S DISEASE
     Dosage: 2 MG QD, 4 MG QD, 6 MG QD, 8 MG QD, 10 MG QD, 12 MG QD, 10 MG QD, 8 MG QD
     Dates: start: 20061011, end: 20061025
  2. NEUPRO [Suspect]
     Indication: PARKINSON'S DISEASE
     Dosage: 2 MG QD, 4 MG QD, 6 MG QD, 8 MG QD, 10 MG QD, 12 MG QD, 10 MG QD, 8 MG QD
     Dates: start: 20061026, end: 20061108
  3. NEUPRO [Suspect]
     Indication: PARKINSON'S DISEASE
     Dosage: 2 MG QD, 4 MG QD, 6 MG QD, 8 MG QD, 10 MG QD, 12 MG QD, 10 MG QD, 8 MG QD
     Dates: start: 20061109, end: 20061130
  4. NEUPRO [Suspect]
     Indication: PARKINSON'S DISEASE
     Dosage: 2 MG QD, 4 MG QD, 6 MG QD, 8 MG QD, 10 MG QD, 12 MG QD, 10 MG QD, 8 MG QD
     Dates: start: 20061201, end: 20070629
  5. NEUPRO [Suspect]
     Indication: PARKINSON'S DISEASE
     Dosage: 2 MG QD, 4 MG QD, 6 MG QD, 8 MG QD, 10 MG QD, 12 MG QD, 10 MG QD, 8 MG QD
     Dates: start: 20070630, end: 20070702
  6. NEUPRO [Suspect]
     Indication: PARKINSON'S DISEASE
     Dosage: 2 MG QD, 4 MG QD, 6 MG QD, 8 MG QD, 10 MG QD, 12 MG QD, 10 MG QD, 8 MG QD
     Dates: start: 20070703, end: 20070829
  7. NEUPRO [Suspect]
     Indication: PARKINSON'S DISEASE
     Dosage: 2 MG QD, 4 MG QD, 6 MG QD, 8 MG QD, 10 MG QD, 12 MG QD, 10 MG QD, 8 MG QD
     Dates: start: 20070830, end: 20080422
  8. NEUPRO [Suspect]
     Indication: PARKINSON'S DISEASE
     Dosage: 2 MG QD, 4 MG QD, 6 MG QD, 8 MG QD, 10 MG QD, 12 MG QD, 10 MG QD, 8 MG QD
     Dates: start: 20080422, end: 20081010
  9. PARKINSAN (PARKKINSAN) [Suspect]
     Indication: PARKINSON'S DISEASE
     Dosage: (10 MG TID), (10 MG BID), (10 MG QD)
     Dates: start: 20080422, end: 20080707
  10. PARKINSAN (PARKKINSAN) [Suspect]
     Indication: PARKINSON'S DISEASE
     Dosage: (10 MG TID), (10 MG BID), (10 MG QD)
     Dates: start: 20080708, end: 20080714
  11. PARKINSAN (PARKKINSAN) [Suspect]
     Indication: PARKINSON'S DISEASE
     Dosage: (10 MG TID), (10 MG BID), (10 MG QD)
     Dates: start: 20080715, end: 20080721
  12. REQUIP [Concomitant]
  13. HYDROCHLOROTHIAZIDE [Concomitant]
  14. NULYTELY [Concomitant]

REACTIONS (1)
  - ELECTROCARDIOGRAM QT PROLONGED [None]
